FAERS Safety Report 5342195-1 (Version None)
Quarter: 2007Q2

REPORT INFORMATION
  Report Type: 
  Country: None (occurrence: None)
  Receive Date: 20070601
  Receipt Date: 20070530
  Transmission Date: 20071010
  Serious: Yes (Hospitalization)
  Sender: FDA-Public Use
  Company Number: D0053438A

PATIENT
  Age: 55 Year
  Sex: Female
  Weight: 70 kg

DRUGS (9)
  1. QUILONUM RETARD [Suspect]
     Dosage: 450MG SEE DOSAGE TEXT
     Route: 048
     Dates: start: 20070529, end: 20070529
  2. ASPIRIN [Suspect]
     Dosage: 100MG SEE DOSAGE TEXT
     Route: 048
     Dates: start: 20070529, end: 20070529
  3. CITALOPRAM HYDROBROMIDE [Suspect]
     Dosage: 60MG SEE DOSAGE TEXT
     Route: 048
     Dates: start: 20070529, end: 20070529
  4. DICLAC [Suspect]
     Dosage: 50MG SEE DOSAGE TEXT
     Route: 048
     Dates: start: 20070529, end: 20070529
  5. GODAMED [Suspect]
     Dosage: 500MG SEE DOSAGE TEXT
     Route: 048
     Dates: start: 20070529, end: 20070529
  6. LOPERAMID [Suspect]
     Dosage: 2MG SEE DOSAGE TEXT
     Route: 048
     Dates: start: 20070529, end: 20070529
  7. NITRAZEPAM [Suspect]
     Dosage: 30MG SEE DOSAGE TEXT
     Route: 048
     Dates: start: 20070529, end: 20070529
  8. NOVALGIN [Suspect]
     Dosage: 500MGML SEE DOSAGE TEXT
     Route: 048
     Dates: start: 20070529, end: 20070529
  9. VALORON N [Suspect]
     Dosage: 108MG SEE DOSAGE TEXT
     Route: 048
     Dates: start: 20070529, end: 20070529

REACTIONS (6)
  - INTENTIONAL OVERDOSE [None]
  - MIOSIS [None]
  - SUICIDE ATTEMPT [None]
  - TACHYCARDIA [None]
  - TREMOR [None]
  - VOMITING [None]
